FAERS Safety Report 8819864 (Version 1)
Quarter: 2012Q4

REPORT INFORMATION
  Report Type: 
  Country: US (occurrence: US)
  Receive Date: 20121001
  Receipt Date: 20121001
  Transmission Date: 20130627
  Serious: Yes (Death, Other)
  Sender: FDA-Public Use
  Company Number: US-ROCHE-1130715

PATIENT
  Sex: Male

DRUGS (7)
  1. HERCEPTIN [Suspect]
     Indication: COLON CANCER
     Dosage: loading dose-336 mg
     Route: 065
     Dates: start: 19981106
  2. HERCEPTIN [Suspect]
     Indication: COLON CANCER
  3. CAMPTOSAR [Concomitant]
     Route: 065
  4. COUMADIN [Concomitant]
     Route: 065
  5. TYLENOL [Concomitant]
  6. 5-FLUOROURACIL [Concomitant]
  7. OXALIPLATIN [Concomitant]

REACTIONS (9)
  - Death [Fatal]
  - Disease progression [Unknown]
  - Chills [Unknown]
  - Fatigue [Unknown]
  - Malaise [Unknown]
  - Decreased appetite [Unknown]
  - Diarrhoea [Unknown]
  - Upper respiratory tract infection [Unknown]
  - Abdominal pain upper [Unknown]
